FAERS Safety Report 9067929 (Version 2)
Quarter: 2013Q2

REPORT INFORMATION
  Report Type: Spontaneous
  Country: US (occurrence: US)
  Receive Date: 20130215
  Receipt Date: 20130513
  Transmission Date: 20140414
  Serious: No
  Sender: FDA-Public Use
  Company Number: US-BIOGENIDEC-2013BI011758

PATIENT
  Age: 45 Year
  Sex: Female

DRUGS (3)
  1. TYSABRI [Suspect]
     Indication: MULTIPLE SCLEROSIS
     Route: 042
     Dates: start: 20080808, end: 20080904
  2. TYSABRI [Suspect]
     Indication: MULTIPLE SCLEROSIS
     Route: 042
     Dates: start: 20121130
  3. AVONEX [Concomitant]
     Indication: MULTIPLE SCLEROSIS
     Route: 030

REACTIONS (7)
  - Rectal haemorrhage [Not Recovered/Not Resolved]
  - Pain [Recovered/Resolved]
  - Ovarian enlargement [Recovered/Resolved]
  - Ovarian adhesion [Recovered/Resolved]
  - Ovarian disorder [Not Recovered/Not Resolved]
  - Amenorrhoea [Unknown]
  - Nasopharyngitis [Not Recovered/Not Resolved]
